FAERS Safety Report 21530581 (Version 4)
Quarter: 2022Q4

REPORT INFORMATION
  Report Type: Spontaneous
  Country: BR (occurrence: BR)
  Receive Date: 20221031
  Receipt Date: 20221128
  Transmission Date: 20230112
  Serious: Yes (Other)
  Sender: FDA-Public Use
  Company Number: BR-TAKEDA-2022TUS078766

PATIENT
  Age: 29 Year
  Sex: Female
  Weight: 90 kg

DRUGS (2)
  1. DEXILANT [Suspect]
     Active Substance: DEXLANSOPRAZOLE
     Indication: Oesophagitis
     Dosage: 60 MILLIGRAM, QD
     Route: 048
     Dates: start: 20221008, end: 20221014
  2. DEXILANT [Suspect]
     Active Substance: DEXLANSOPRAZOLE
     Indication: Gastritis

REACTIONS (17)
  - Infarction [Unknown]
  - Off label use [Unknown]
  - Drug ineffective for unapproved indication [Unknown]
  - Heart rate increased [Unknown]
  - Fear [Unknown]
  - Fear of death [Unknown]
  - Heart rate decreased [Unknown]
  - Vertigo [Unknown]
  - Tachycardia [Unknown]
  - Dizziness [Unknown]
  - Vision blurred [Unknown]
  - Feeling abnormal [Unknown]
  - Insomnia [Unknown]
  - Dyspnoea [Unknown]
  - Chest pain [Unknown]
  - Tinnitus [Unknown]
  - Nausea [Unknown]

NARRATIVE: CASE EVENT DATE: 20221008
